FAERS Safety Report 24902755 (Version 1)
Quarter: 2025Q1

REPORT INFORMATION
  Report Type: Spontaneous
  Country: US (occurrence: US)
  Receive Date: 20250130
  Receipt Date: 20250130
  Transmission Date: 20250408
  Serious: No
  Sender: SUNOVION
  Company Number: US-SMPA-2025SPA000611AA

PATIENT

DRUGS (1)
  1. GEMTESA [Suspect]
     Active Substance: VIBEGRON
     Route: 048

REACTIONS (4)
  - Rhinorrhoea [Unknown]
  - Lacrimation increased [Unknown]
  - Sneezing [Unknown]
  - Oropharyngeal pain [Unknown]
